FAERS Safety Report 5939597-9 (Version None)
Quarter: 2008Q4

REPORT INFORMATION
  Report Type: 
  Country: None (occurrence: None)
  Receive Date: 20081030
  Receipt Date: 20081021
  Transmission Date: 20090506
  Serious: Yes (Death)
  Sender: FDA-Public Use
  Company Number: 2008BI028564

PATIENT
  Sex: Female

DRUGS (1)
  1. AVONEX [Suspect]
     Dates: start: 20040704, end: 20041104

REACTIONS (1)
  - DEATH [None]
